FAERS Safety Report 7240729-3 (Version None)
Quarter: 2011Q1

REPORT INFORMATION
  Report Type: 
  Country: None (occurrence: None)
  Receive Date: 20110124
  Receipt Date: 20100405
  Transmission Date: 20110831
  Serious: No
  Sender: FDA-Public Use
  Company Number: US-KINGPHARMUSA00001-K201000410

PATIENT
  Sex: Female
  Weight: 53.061 kg

DRUGS (1)
  1. EPIPEN [Suspect]
     Dosage: 0.3 MG, SINGLE
     Dates: start: 20100404, end: 20100404

REACTIONS (4)
  - ACCIDENTAL EXPOSURE [None]
  - INJECTION SITE PALLOR [None]
  - INJECTION SITE PAIN [None]
  - SKELETAL INJURY [None]
